FAERS Safety Report 10416636 (Version 1)
Quarter: 2014Q3

REPORT INFORMATION
  Report Type: Spontaneous
  Country: GB (occurrence: GB)
  Receive Date: 20140828
  Receipt Date: 20140828
  Transmission Date: 20150326
  Serious: Yes (Other)
  Sender: FDA-Public Use
  Company Number: GB-TEVA-503735ISR

PATIENT
  Age: 28 Year
  Sex: Male
  Weight: 88.9 kg

DRUGS (5)
  1. CLARITHROMYCIN. [Suspect]
     Active Substance: CLARITHROMYCIN
     Indication: LOWER RESPIRATORY TRACT INFECTION
     Dosage: 1000 MILLIGRAM DAILY;
     Route: 048
     Dates: start: 20140807, end: 20140808
  2. AMOXICILLIN. [Concomitant]
     Active Substance: AMOXICILLIN
  3. COCODAMOL [Concomitant]
     Active Substance: ACETAMINOPHEN\CODEINE PHOSPHATE
  4. PARACETAMOL [Concomitant]
     Active Substance: ACETAMINOPHEN
  5. SIMPLE LINCTUS [Concomitant]
     Active Substance: AMARANTH\CHLOROFORM\CITRIC ACID MONOHYDRATE\PIMPINELLA ANISUM WHOLE

REACTIONS (4)
  - Dyspepsia [Recovering/Resolving]
  - Nausea [Recovering/Resolving]
  - Heart rate increased [Recovering/Resolving]
  - Feeling abnormal [Recovering/Resolving]

NARRATIVE: CASE EVENT DATE: 20140807
